FAERS Safety Report 4283404-X (Version None)
Quarter: 2004Q1

REPORT INFORMATION
  Report Type: 
  Country: None (occurrence: None)
  Receive Date: 20040202
  Receipt Date: 20040121
  Transmission Date: 20041129
  Serious: Yes (Other)
  Sender: FDA-Public Use
  Company Number: 200410948GDDC

PATIENT
  Sex: 0

DRUGS (2)
  1. ARAVA [Suspect]
     Route: 048
     Dates: end: 20040121
  2. TYLENOL (CAPLET) [Suspect]
     Dosage: DOSE: UNK

REACTIONS (2)
  - HEPATOTOXICITY [None]
  - OVERDOSE [None]
